FAERS Safety Report 4706114-0 (Version None)
Quarter: 2005Q2

REPORT INFORMATION
  Report Type: 
  Country: None (occurrence: None)
  Receive Date: 20050627
  Receipt Date: 20041207
  Transmission Date: 20051028
  Serious: Yes (Hospitalization)
  Sender: FDA-Public Use
  Company Number: US-JNJFOC-20041104952

PATIENT
  Age: 66 Year
  Sex: Female
  Weight: 99.7913 kg

DRUGS (2)
  1. DURAGESIC-100 [Suspect]
     Indication: BACK PAIN
     Dosage: 50 UG/HR, 1 IN 72 HOUR, TRANSDERMAL
     Route: 062
     Dates: start: 20030101
  2. OXYCODONE AND ACETMINOPHEN (OXYCOCET) [Concomitant]

REACTIONS (1)
  - NAUSEA [None]
